FAERS Safety Report 5631694-0 (Version None)
Quarter: 2008Q1

REPORT INFORMATION
  Report Type: 
  Country: None (occurrence: None)
  Receive Date: 20080220
  Receipt Date: 20080212
  Transmission Date: 20080703
  Serious: Yes (Hospitalization)
  Sender: FDA-Public Use
  Company Number: JP-JNJFOC-20080203079

PATIENT
  Age: 64 Year
  Sex: Female

DRUGS (3)
  1. ITRIZOLE [Suspect]
     Indication: ORAL CANDIDIASIS
     Route: 048
  2. PREDNISOLONE [Concomitant]
     Route: 048
  3. RISPERDAL [Concomitant]
     Route: 048

REACTIONS (1)
  - PANCYTOPENIA [None]
